FAERS Safety Report 16937772 (Version 1)
Quarter: 2019Q4

REPORT INFORMATION
  Report Type: Spontaneous
  Country: FR (occurrence: FR)
  Receive Date: 20191018
  Receipt Date: 20191018
  Transmission Date: 20200122
  Serious: Yes (Other)
  Sender: FDA-Public Use
  Company Number: FR-GLAXOSMITHKLINE-FR2019EME184872

PATIENT

DRUGS (1)
  1. FLUTICASONE. [Suspect]
     Active Substance: FLUTICASONE
     Indication: CHRONIC OBSTRUCTIVE PULMONARY DISEASE
     Dosage: 500 MG, BID
     Route: 055

REACTIONS (7)
  - Acne [Unknown]
  - Skin fragility [Unknown]
  - Purpura [Unknown]
  - Spontaneous haematoma [Unknown]
  - Skin laceration [Unknown]
  - Skin atrophy [Unknown]
  - Rosacea [Unknown]
